FAERS Safety Report 8057498-X (Version None)
Quarter: 2012Q1

REPORT INFORMATION
  Report Type: 
  Country: None (occurrence: None)
  Receive Date: 20120119
  Receipt Date: 20120110
  Transmission Date: 20120608
  Serious: Yes (Other)
  Sender: FDA-Public Use
  Company Number: US-ASTRAZENECA-2011SE07859

PATIENT
  Age: 61 Year
  Sex: Female

DRUGS (1)
  1. NEXIUM [Suspect]
     Route: 048

REACTIONS (5)
  - NEOPLASM MALIGNANT [None]
  - GASTROENTERITIS VIRAL [None]
  - ARTHRITIS [None]
  - DYSPNOEA [None]
  - JOINT INJURY [None]
